FAERS Safety Report 6488622-8 (Version None)
Quarter: 2009Q4

REPORT INFORMATION
  Report Type: 
  Country: None (occurrence: None)
  Receive Date: 20091210
  Receipt Date: 20091201
  Transmission Date: 20100525
  Serious: Yes (Other)
  Sender: FDA-Public Use
  Company Number: US-B.I. PHARMACEUTICALS,INC./RIDGEFIELD-2009-BP-09133BP

PATIENT
  Sex: Male

DRUGS (5)
  1. FLOMAX [Suspect]
     Indication: DYSURIA
     Dosage: 0.4 MG
     Route: 048
     Dates: start: 20090701, end: 20090802
  2. PREVACID [Concomitant]
     Dosage: 30 MG
  3. AVODART [Concomitant]
     Dosage: 0.4 MG
  4. AZOPT [Concomitant]
  5. LUMIGAN [Concomitant]

REACTIONS (14)
  - AMNESIA [None]
  - BACK PAIN [None]
  - COCCYDYNIA [None]
  - DIZZINESS POSTURAL [None]
  - DYSPNOEA [None]
  - FALL [None]
  - HAEMORRHAGE [None]
  - HEAD INJURY [None]
  - HEADACHE [None]
  - HYPOTENSION [None]
  - LOSS OF CONSCIOUSNESS [None]
  - PAIN [None]
  - SKIN LACERATION [None]
  - SYNCOPE [None]
